FAERS Safety Report 5012555-7 (Version None)
Quarter: 2006Q2

REPORT INFORMATION
  Report Type: 
  Country: None (occurrence: None)
  Receive Date: 20060526
  Receipt Date: 20030813
  Transmission Date: 20061013
  Serious: Yes (Disabling)
  Sender: FDA-Public Use
  Company Number: US-MERCK-0308USA01430

PATIENT
  Age: 76 Year
  Sex: Female

DRUGS (2)
  1. FOSAMAX [Suspect]
     Indication: OSTEOPOROSIS
     Route: 048
     Dates: start: 19940101
  2. FLONASE [Concomitant]
     Route: 065

REACTIONS (4)
  - ARTHRITIS [None]
  - HYPERTENSION [None]
  - RESORPTION BONE INCREASED [None]
  - VISUAL DISTURBANCE [None]
